FAERS Safety Report 17112726 (Version 1)
Quarter: 2019Q4

REPORT INFORMATION
  Report Type: Spontaneous
  Country: US (occurrence: US)
  Receive Date: 20191204
  Receipt Date: 20191204
  Transmission Date: 20200122
  Serious: Yes (Other)
  Sender: FDA-Public Use
  Company Number: US-NOVOPROD-699738

PATIENT

DRUGS (1)
  1. NOVOLOG [Suspect]
     Active Substance: INSULIN ASPART
     Indication: TYPE 2 DIABETES MELLITUS
     Dosage: 60-65 IU BID
     Route: 058
     Dates: start: 2000, end: 201903

REACTIONS (6)
  - Fracture [Not Recovered/Not Resolved]
  - Concussion [Not Recovered/Not Resolved]
  - Blood glucose decreased [Recovered/Resolved]
  - Increased appetite [Recovered/Resolved]
  - Hypoglycaemic unconsciousness [Recovered/Resolved]
  - Nerve compression [Not Recovered/Not Resolved]

NARRATIVE: CASE EVENT DATE: 2016
